FAERS Safety Report 16107116 (Version 1)
Quarter: 2019Q1

REPORT INFORMATION
  Report Type: Report from Study
  Country: US (occurrence: US)
  Receive Date: 20190322
  Receipt Date: 20190322
  Transmission Date: 20190418
  Serious: Yes (Other)
  Sender: FDA-Public Use
  Company Number: US-SHIRE-US201908796

PATIENT
  Sex: Male
  Weight: 77.1 kg

DRUGS (1)
  1. GATTEX [Suspect]
     Active Substance: TEDUGLUTIDE\WATER
     Indication: PRODUCT USED FOR UNKNOWN INDICATION
     Dosage: 0.19 MILLILITER, 1X/DAY:QD
     Route: 050

REACTIONS (2)
  - Atrial fibrillation [Unknown]
  - Renal impairment [Unknown]
